FAERS Safety Report 9539378 (Version 2)
Quarter: 2014Q1

REPORT INFORMATION
  Report Type: Spontaneous
  Country: JP (occurrence: None)
  Receive Date: 20130917
  Receipt Date: 20140305
  Transmission Date: 20141002
  Serious: Yes (Hospitalization, Other)
  Sender: FDA-Public Use
  Company Number: ADR-2013-01604

PATIENT
  Age: 64 Year
  Sex: Male

DRUGS (1)
  1. GABALON [Suspect]

REACTIONS (4)
  - Colon cancer [None]
  - Ileus [None]
  - Abdominal pain upper [None]
  - Pneumonia [None]
